FAERS Safety Report 7902823-0 (Version None)
Quarter: 2011Q4

REPORT INFORMATION
  Report Type: 
  Country: None (occurrence: None)
  Receive Date: 20111109
  Receipt Date: 20111101
  Transmission Date: 20120403
  Serious: No
  Sender: FDA-Public Use
  Company Number: US-BIOGENIDEC-2011BI041732

PATIENT
  Age: 53 Year
  Sex: Female

DRUGS (1)
  1. AVONEX [Suspect]
     Indication: MULTIPLE SCLEROSIS
     Route: 030
     Dates: start: 20090622

REACTIONS (5)
  - ROAD TRAFFIC ACCIDENT [None]
  - FATIGUE [None]
  - NERVE ROOT COMPRESSION [None]
  - HEADACHE [None]
  - BACK PAIN [None]
